FAERS Safety Report 4274656-0 (Version None)
Quarter: 2004Q1

REPORT INFORMATION
  Report Type: 
  Country: None (occurrence: None)
  Receive Date: 20040120
  Receipt Date: 20040113
  Transmission Date: 20041129
  Serious: Yes (Disabling)
  Sender: FDA-Public Use
  Company Number: PHEH2004US00847

PATIENT
  Age: 52 Year
  Sex: Female

DRUGS (1)
  1. LAMISIL [Suspect]
     Indication: NAIL TINEA
     Dosage: 250 MG, QD
     Route: 048
     Dates: start: 20010101, end: 20010101

REACTIONS (2)
  - CONDITION AGGRAVATED [None]
  - RAYNAUD'S PHENOMENON [None]
